FAERS Safety Report 21523102 (Version 1)
Quarter: 2022Q4

REPORT INFORMATION
  Report Type: Spontaneous
  Country: US (occurrence: US)
  Receive Date: 20221029
  Receipt Date: 20221029
  Transmission Date: 20230113
  Serious: No
  Sender: FDA-Public Use
  Company Number: US-ORGANON-O2210USA001015

PATIENT
  Age: 43 Year
  Sex: Female

DRUGS (1)
  1. DIPROLENE AF [Suspect]
     Active Substance: BETAMETHASONE DIPROPIONATE
     Indication: Skin depigmentation
     Dosage: UNK

REACTIONS (1)
  - Product use in unapproved indication [Unknown]
